FAERS Safety Report 19422316 (Version 1)
Quarter: 2021Q2

REPORT INFORMATION
  Report Type: Spontaneous
  Country: US (occurrence: US)
  Receive Date: 20210615
  Receipt Date: 20210615
  Transmission Date: 20210717
  Serious: Yes (Life-Threatening, Hospitalization)
  Sender: FDA-Public Use
  Company Number: None

PATIENT
  Age: 82 Year
  Sex: Male
  Weight: 98 kg

DRUGS (1)
  1. CASIRIVIMAB/IMDEVIMAB [Suspect]
     Active Substance: CASIRIVIMAB\IMDEVIMAB
     Indication: COVID-19
     Route: 040

REACTIONS (8)
  - Respiratory failure [None]
  - Pyrexia [None]
  - Troponin increased [None]
  - Disease progression [None]
  - Superinfection [None]
  - Shock [None]
  - Immune-mediated adverse reaction [None]
  - Anaphylactic reaction [None]

NARRATIVE: CASE EVENT DATE: 20210614
